FAERS Safety Report 5259234-9 (Version None)
Quarter: 2007Q1

REPORT INFORMATION
  Report Type: 
  Country: None (occurrence: None)
  Receive Date: 20070308
  Receipt Date: 20070223
  Transmission Date: 20070707
  Serious: Yes (Other)
  Sender: FDA-Public Use
  Company Number: US-AMGEN-KDL207777

PATIENT
  Sex: Female

DRUGS (5)
  1. ENBREL [Suspect]
     Indication: PSORIASIS
     Route: 058
     Dates: start: 20060131
  2. ZYRTEC [Concomitant]
     Dates: start: 20061122
  3. ROBAXIN [Concomitant]
     Dates: start: 20061227
  4. OLUX [Concomitant]
     Dates: start: 20060301
  5. MECLIZINE [Concomitant]
     Dates: start: 20060501

REACTIONS (11)
  - CHILLS [None]
  - COLD SWEAT [None]
  - DIZZINESS [None]
  - EXPOSURE TO TOXIC AGENT [None]
  - HEADACHE [None]
  - LOSS OF CONSCIOUSNESS [None]
  - NAUSEA [None]
  - PALPITATIONS [None]
  - PSORIASIS [None]
  - SKIN INFECTION [None]
  - TREMOR [None]
